FAERS Safety Report 11392285 (Version 2)
Quarter: 2015Q3

REPORT INFORMATION
  Report Type: Report from Study
  Country: BR (occurrence: BR)
  Receive Date: 20150818
  Receipt Date: 20150907
  Transmission Date: 20151125
  Serious: Yes (Other)
  Sender: FDA-Public Use
  Company Number: BR-ACTELION-A-CH2015-122593

PATIENT
  Age: 6 Year
  Sex: Female
  Weight: 19.5 kg

DRUGS (1)
  1. ZAVESCA [Suspect]
     Active Substance: MIGLUSTAT
     Indication: GAUCHER^S DISEASE TYPE III
     Dosage: 100 MG, TID
     Route: 048
     Dates: start: 201401

REACTIONS (4)
  - Diarrhoea [Unknown]
  - Erythema [Recovered/Resolved]
  - Dermatitis allergic [Recovered/Resolved]
  - Pruritus [Recovered/Resolved]

NARRATIVE: CASE EVENT DATE: 20150812
